FAERS Safety Report 9645232 (Version 4)
Quarter: 2013Q4

REPORT INFORMATION
  Report Type: Spontaneous
  Country: US (occurrence: US)
  Receive Date: 20131025
  Receipt Date: 20131203
  Transmission Date: 20140711
  Serious: Yes (Death, Life-Threatening, Hospitalization)
  Sender: FDA-Public Use
  Company Number: US-SA-2013SA096846

PATIENT
  Age: 64 Year
  Sex: Male
  Weight: 85 kg

DRUGS (13)
  1. AMIODARONE HYDROCHLORIDE [Suspect]
     Indication: PRODUCT USED FOR UNKNOWN INDICATION
     Route: 065
  2. ELOXATIN [Suspect]
     Indication: COLON CANCER STAGE III
     Dosage: OVER 2 HOURS
     Route: 042
     Dates: start: 20130507, end: 20130812
  3. 5-FU [Suspect]
     Indication: ADENOCARCINOMA OF COLON
     Dosage: ON DAY 1?TOTAL 6 CYCLES
     Route: 040
     Dates: start: 20130507, end: 20130814
  4. 5-FU [Suspect]
     Indication: ADENOCARCINOMA OF COLON
     Dosage: OVER 46-48 HRS ON DAY 1?TOTAL 6 CYCLES
     Route: 042
     Dates: start: 20130507, end: 20130814
  5. FUROSEMIDE [Concomitant]
  6. METFORMIN [Concomitant]
  7. MORPHINE [Concomitant]
  8. NORTRIPTYLINE [Concomitant]
  9. PREGABALIN [Concomitant]
  10. RAMIPRIL [Concomitant]
  11. RIVAROXABAN [Concomitant]
  12. LEUCOVORIN [Concomitant]
  13. BLINDED THERAPY [Concomitant]
     Indication: COLON CANCER STAGE III
     Route: 048
     Dates: start: 20130507

REACTIONS (1)
  - Pneumonitis [Fatal]
